FAERS Safety Report 4832527-2 (Version None)
Quarter: 2005Q4

REPORT INFORMATION
  Report Type: 
  Country: None (occurrence: None)
  Receive Date: 20051117
  Receipt Date: 20051117
  Transmission Date: 20060501
  Serious: Yes (Hospitalization)
  Sender: FDA-Public Use
  Company Number: None

PATIENT
  Age: 58 Year
  Sex: Male
  Weight: 95.2554 kg

DRUGS (1)
  1. PENTAZOCINE/NALOXONE TAB-TALWIN  WALMART PHARMACY [Suspect]
     Indication: PAIN
     Dosage: USED APPROX. 6 NIGHT ONLY
     Dates: start: 20051004, end: 20051014

REACTIONS (7)
  - BLISTER [None]
  - GINGIVAL PAIN [None]
  - MUCOUS MEMBRANE DISORDER [None]
  - PROCTALGIA [None]
  - PYREXIA [None]
  - RASH MACULAR [None]
  - RHINALGIA [None]
